FAERS Safety Report 8953256 (Version 3)
Quarter: 2013Q1

REPORT INFORMATION
  Report Type: Spontaneous
  Country: DE (occurrence: DE)
  Receive Date: 20121206
  Receipt Date: 20130319
  Transmission Date: 20140127
  Serious: Yes (Life-Threatening, Hospitalization, Other)
  Sender: FDA-Public Use
  Company Number: DE-JNJFOC-20121201371

PATIENT
  Age: 86 Year
  Sex: Female
  Weight: 81 kg

DRUGS (5)
  1. XARELTO [Suspect]
     Indication: EMBOLISM VENOUS
     Route: 048
     Dates: start: 201202, end: 20121110
  2. XARELTO [Suspect]
     Indication: DEEP VEIN THROMBOSIS
     Route: 048
     Dates: start: 201202, end: 20121110
  3. NITRENDIPIN [Concomitant]
     Indication: HYPERTENSION
     Route: 065
  4. LISINOPRIL [Concomitant]
     Indication: HYPERTENSION
     Route: 065
  5. HCT [Concomitant]
     Route: 065

REACTIONS (2)
  - Renal failure [Recovering/Resolving]
  - Blood creatinine increased [Recovering/Resolving]
